FAERS Safety Report 7795999-X (Version None)
Quarter: 2011Q4

REPORT INFORMATION
  Report Type: 
  Country: None (occurrence: None)
  Receive Date: 20111004
  Receipt Date: 20110930
  Transmission Date: 20120403
  Serious: Yes (Death, Life-Threatening, Hospitalization)
  Sender: FDA-Public Use
  Company Number: JP-B.I. PHARMACEUTICALS,INC./RIDGEFIELD-2011-BP-22275NB

PATIENT
  Sex: Female

DRUGS (7)
  1. EPLERENONE [Concomitant]
     Indication: HYPERTENSION
     Dosage: 50 MG
     Route: 048
     Dates: start: 20110316
  2. RABEPRAZOLE SODIUM [Concomitant]
     Indication: GASTROOESOPHAGEAL REFLUX DISEASE
     Dosage: 10 MG
     Route: 048
     Dates: start: 20110316
  3. PRADAXA [Suspect]
     Indication: ATRIAL FIBRILLATION
     Dosage: 220 MG
     Route: 048
     Dates: start: 20110316
  4. BISOPROLOL FUMARATE [Concomitant]
     Indication: HYPERTENSION
     Dosage: 1.25 MG
     Route: 048
     Dates: start: 20110316
  5. DIART [Concomitant]
     Indication: CARDIAC FAILURE CONGESTIVE
     Dosage: 30 MG
     Route: 048
     Dates: start: 20110316
  6. FERROUS CITRATE [Concomitant]
     Indication: IRON DEFICIENCY ANAEMIA
     Dosage: 100 MG
     Route: 048
     Dates: start: 20090717
  7. GASTROM [Concomitant]
     Indication: GASTRITIS
     Dosage: 1.5 G
     Route: 048
     Dates: start: 20090717

REACTIONS (5)
  - GASTROINTESTINAL HAEMORRHAGE [None]
  - MELAENA [None]
  - DECREASED APPETITE [None]
  - CONSTIPATION [None]
  - DIARRHOEA [None]
